FAERS Safety Report 18935257 (Version 3)
Quarter: 2021Q1

REPORT INFORMATION
  Report Type: Report from Study
  Country: US (occurrence: US)
  Receive Date: 20210224
  Receipt Date: 20210308
  Transmission Date: 20210420
  Serious: No
  Sender: FDA-Public Use
  Company Number: US-HRARD-2020001002

PATIENT
  Sex: Female

DRUGS (5)
  1. LYSODREN [Suspect]
     Active Substance: MITOTANE
     Indication: PRODUCT USED FOR UNKNOWN INDICATION
  2. NEXIUM [Concomitant]
     Active Substance: ESOMEPRAZOLE MAGNESIUM
     Indication: PRODUCT USED FOR UNKNOWN INDICATION
  3. CAPECITABINE. [Concomitant]
     Active Substance: CAPECITABINE
     Indication: PRODUCT USED FOR UNKNOWN INDICATION
  4. METOPIRONE [Suspect]
     Active Substance: METYRAPONE
     Indication: ENDOCRINE NEOPLASM MALIGNANT
     Route: 048
     Dates: start: 20201023
  5. KECOTONAZOLE [Concomitant]
     Indication: PRODUCT USED FOR UNKNOWN INDICATION

REACTIONS (2)
  - Abdominal discomfort [Not Recovered/Not Resolved]
  - Off label use [Not Recovered/Not Resolved]

NARRATIVE: CASE EVENT DATE: 2020
